FAERS Safety Report 13849868 (Version 1)
Quarter: 2017Q3

REPORT INFORMATION
  Report Type: Spontaneous
  Country: JP (occurrence: JP)
  Receive Date: 20170809
  Receipt Date: 20170809
  Transmission Date: 20171127
  Serious: Yes (Other)
  Sender: FDA-Public Use
  Company Number: PHJP2017JP025121

PATIENT
  Age: 78 Year
  Sex: Female

DRUGS (1)
  1. VOTRIENT [Suspect]
     Active Substance: PAZOPANIB HYDROCHLORIDE
     Indication: PHYLLODES TUMOUR
     Dosage: UNK
     Route: 048
     Dates: start: 201608

REACTIONS (6)
  - Hyperthyroidism [Recovered/Resolved]
  - Dysgeusia [Unknown]
  - Platelet count decreased [Unknown]
  - Renal impairment [Unknown]
  - Oedema peripheral [Unknown]
  - Skin hypopigmentation [Unknown]
